FAERS Safety Report 25421668 (Version 1)
Quarter: 2025Q2

REPORT INFORMATION
  Report Type: Spontaneous
  Country: TW (occurrence: TW)
  Receive Date: 20250611
  Receipt Date: 20250611
  Transmission Date: 20250716
  Serious: Yes (Other)
  Sender: AMGEN
  Company Number: TW-AMGEN-TWNSP2025110204

PATIENT

DRUGS (1)
  1. EVOLOCUMAB [Suspect]
     Active Substance: EVOLOCUMAB
     Indication: Hyperlipidaemia
     Route: 065

REACTIONS (2)
  - Neoplasm malignant [Unknown]
  - Breast cancer [Unknown]
